FAERS Safety Report 6652668-7 (Version None)
Quarter: 2010Q1

REPORT INFORMATION
  Report Type: 
  Country: None (occurrence: None)
  Receive Date: 20100326
  Receipt Date: 20100315
  Transmission Date: 20100710
  Serious: Yes (Other)
  Sender: FDA-Public Use
  Company Number: US-BAYER-201016655NA

PATIENT
  Sex: Female

DRUGS (4)
  1. MIRENA [Suspect]
     Indication: DRUG USE FOR UNKNOWN INDICATION
     Dosage: FREQUENCY: CONTINUOUS
     Route: 015
     Dates: start: 20090701
  2. BIRTH CONTROL PILL [Concomitant]
     Indication: VAGINAL HAEMORRHAGE
     Route: 048
     Dates: start: 20090101, end: 20090101
  3. BIRTH CONTROL PILL [Concomitant]
     Route: 048
     Dates: start: 20090101, end: 20090101
  4. IRON [Concomitant]
     Indication: VAGINAL HAEMORRHAGE
     Route: 065
     Dates: start: 20090101

REACTIONS (6)
  - DEVICE DISLOCATION [None]
  - OVARIAN CYST [None]
  - PAIN [None]
  - PROCEDURAL PAIN [None]
  - UTERINE HAEMORRHAGE [None]
  - VAGINAL HAEMORRHAGE [None]
